FAERS Safety Report 9925407 (Version 1)
Quarter: 2014Q1

REPORT INFORMATION
  Report Type: Spontaneous
  Country: ES (occurrence: ES)
  Receive Date: 20140226
  Receipt Date: 20140226
  Transmission Date: 20141002
  Serious: Yes (Other)
  Sender: FDA-Public Use
  Company Number: ES-JNJFOC-20140214964

PATIENT
  Age: 32 Year
  Sex: Female
  Weight: 65 kg

DRUGS (4)
  1. REMICADE [Suspect]
     Indication: CROHN^S DISEASE
     Route: 042
     Dates: start: 20130408, end: 20131227
  2. AZATIOPRINA [Concomitant]
     Route: 065
  3. SALAZOPYRIN [Concomitant]
     Route: 065
  4. DOLQUINE [Concomitant]
     Route: 065

REACTIONS (1)
  - Systemic lupus erythematosus [Unknown]
